FAERS Safety Report 11285936 (Version 2)
Quarter: 2015Q3

REPORT INFORMATION
  Report Type: Spontaneous
  Country: US (occurrence: US)
  Receive Date: 20150721
  Receipt Date: 20150724
  Transmission Date: 20151125
  Serious: Yes (Death, Other)
  Sender: FDA-Public Use
  Company Number: US-MERCK-1507USA008927

PATIENT
  Age: 62 Year
  Sex: Female

DRUGS (4)
  1. DAUNORUBICIN [Concomitant]
     Active Substance: DAUNORUBICIN
     Dosage: UNK
     Dates: start: 20150610, end: 20150614
  2. NOXAFIL [Suspect]
     Active Substance: POSACONAZOLE
     Indication: PROPHYLAXIS
     Dosage: UNK
     Dates: start: 20150610, end: 20150614
  3. CYTARABINE. [Concomitant]
     Active Substance: CYTARABINE
     Indication: CHEMOTHERAPY
     Dosage: UNK
     Dates: start: 20150610, end: 20150614
  4. NOXAFIL [Suspect]
     Active Substance: POSACONAZOLE
     Dosage: UNK
     Dates: start: 20150616

REACTIONS (5)
  - Pneumonitis [Fatal]
  - Skin mass [Unknown]
  - Pneumonia [Unknown]
  - Scedosporium infection [Unknown]
  - Sepsis [Fatal]

NARRATIVE: CASE EVENT DATE: 2015
